FAERS Safety Report 4651772-2 (Version None)
Quarter: 2005Q2

REPORT INFORMATION
  Report Type: 
  Country: None (occurrence: None)
  Receive Date: 20050504
  Receipt Date: 20050503
  Transmission Date: 20051028
  Serious: Yes (Hospitalization)
  Sender: FDA-Public Use
  Company Number: FR-RB-1585-2005

PATIENT
  Age: 28 Year
  Sex: Male

DRUGS (3)
  1. BUPRENORPHINE HCL [Suspect]
     Indication: DRUG DEPENDENCE
     Route: 042
     Dates: start: 19990101
  2. BUPRENORPHINE HCL [Suspect]
     Route: 042
     Dates: end: 20050101
  3. BUPRENORPHINE HCL [Suspect]
     Route: 042
     Dates: start: 20050101

REACTIONS (2)
  - INTENTIONAL MISUSE [None]
  - PYOPNEUMOTHORAX [None]
